FAERS Safety Report 7873980-X (Version None)
Quarter: 2011Q4

REPORT INFORMATION
  Report Type: 
  Country: None (occurrence: None)
  Receive Date: 20111030
  Receipt Date: 20110512
  Transmission Date: 20120403
  Serious: No
  Sender: FDA-Public Use
  Company Number: US-AMGEN-USASP2011024713

PATIENT
  Age: 8 Year
  Sex: Female

DRUGS (2)
  1. ENBREL [Suspect]
     Indication: JUVENILE ARTHRITIS
     Dosage: 25 MG, 2 TIMES/WK
     Dates: start: 20030601
  2. TREXALL [Concomitant]
     Dosage: 1 MG, QWK
     Dates: start: 20100722

REACTIONS (1)
  - RHEUMATOID ARTHRITIS [None]
